FAERS Safety Report 9205950 (Version 2)
Quarter: 2013Q3

REPORT INFORMATION
  Report Type: Spontaneous
  Country: US (occurrence: US)
  Receive Date: 20130403
  Receipt Date: 20130703
  Transmission Date: 20140515
  Serious: Yes (Hospitalization)
  Sender: FDA-Public Use
  Company Number: US-JNJFOC-20130318283

PATIENT
  Age: 75 Year
  Sex: Female

DRUGS (7)
  1. STELARA [Suspect]
     Indication: PSORIASIS
     Dosage: FIRST INJECTION
     Route: 058
     Dates: start: 20130212, end: 20130212
  2. STELARA [Suspect]
     Indication: PSORIASIS
     Route: 058
     Dates: start: 20130327, end: 20130327
  3. CELEBREX [Suspect]
     Indication: ARTHRITIS
     Route: 048
     Dates: end: 20130221
  4. RECLAST [Concomitant]
     Indication: OSTEOPOROSIS
     Route: 065
  5. FLONASE [Concomitant]
     Indication: RHINITIS ALLERGIC
     Route: 045
  6. LISINOPRIL [Concomitant]
     Indication: HYPERTENSION
     Route: 065
  7. METHOTREXATE [Concomitant]
     Indication: PSORIASIS
     Route: 065
     Dates: start: 20130130, end: 20130417

REACTIONS (1)
  - Transient ischaemic attack [Recovered/Resolved]
